FAERS Safety Report 7948319 (Version 6)
Quarter: 2014Q2

REPORT INFORMATION
  Report Type: Spontaneous
  Country: US (occurrence: US)
  Receive Date: 20110517
  Receipt Date: 20140523
  Transmission Date: 20141212
  Serious: Yes (Hospitalization, Other)
  Sender: FDA-Public Use
  Company Number: US-ROCHE-776852

PATIENT
  Sex: Female
  Weight: 54.48 kg

DRUGS (1)
  1. ACCUTANE [Suspect]
     Indication: ACNE
     Route: 065
     Dates: start: 1996, end: 1999

REACTIONS (10)
  - Depression [Unknown]
  - Suicidal ideation [Unknown]
  - Small intestinal obstruction [Unknown]
  - Suicide attempt [Unknown]
  - Crohn^s disease [Unknown]
  - Inflammatory bowel disease [Unknown]
  - Anxiety [Unknown]
  - Post-traumatic stress disorder [Unknown]
  - Diarrhoea [Unknown]
  - Faeces discoloured [Unknown]
